FAERS Safety Report 5034688-1 (Version None)
Quarter: 2006Q2

REPORT INFORMATION
  Report Type: 
  Country: None (occurrence: None)
  Receive Date: 20060621
  Receipt Date: 20060608
  Transmission Date: 20061013
  Serious: Yes (Other)
  Sender: FDA-Public Use
  Company Number: 2006BI007029

PATIENT
  Age: 53 Year
  Sex: Female

DRUGS (8)
  1. AVONEX [Suspect]
     Indication: MULTIPLE SCLEROSIS
     Dosage: 30 UG;QW;IM
     Route: 030
     Dates: end: 20010101
  2. AVONEX [Suspect]
     Indication: MULTIPLE SCLEROSIS
     Dosage: 30 UG;QW;IM
     Route: 030
     Dates: start: 20050617, end: 20060101
  3. LISINOPRIL [Concomitant]
  4. ASPIRIN [Concomitant]
  5. NORVASC [Concomitant]
  6. AMANTADINE HCL [Concomitant]
  7. GLUCOPHAGE [Concomitant]
  8. NAPROSYN [Concomitant]

REACTIONS (3)
  - METASTASES TO LIVER [None]
  - OVARIAN CANCER [None]
  - RECURRENT CANCER [None]
